FAERS Safety Report 20290854 (Version 4)
Quarter: 2024Q1

REPORT INFORMATION
  Report Type: Report from Study
  Country: AR (occurrence: AR)
  Receive Date: 20220104
  Receipt Date: 20240213
  Transmission Date: 20240410
  Serious: Yes (Life-Threatening)
  Sender: FDA-Public Use
  Company Number: AR-NOVARTISPH-NVSC2020AR322700

PATIENT
  Age: 71 Year
  Sex: Female

DRUGS (8)
  1. COSENTYX [Suspect]
     Active Substance: SECUKINUMAB
     Indication: Psoriasis
     Dosage: 300 MG, QW
     Route: 058
     Dates: start: 20181011
  2. COSENTYX [Suspect]
     Active Substance: SECUKINUMAB
     Dosage: 300 MG, QMO
     Route: 058
  3. LEVOTHYROXINE [Concomitant]
     Active Substance: LEVOTHYROXINE\LEVOTHYROXINE SODIUM
     Indication: Product used for unknown indication
     Dosage: 150 MCG/ML, QD
     Route: 065
  4. CALCIMAX [Concomitant]
     Indication: Product used for unknown indication
     Dosage: UNK
     Route: 065
  5. REOVEX [Concomitant]
     Indication: Product used for unknown indication
     Dosage: 20 MG
     Route: 065
  6. COMENTER [Concomitant]
     Indication: Product used for unknown indication
     Dosage: 30 MG, UNKNOWN
     Route: 065
  7. ALPRAZOLAM [Concomitant]
     Active Substance: ALPRAZOLAM
     Indication: Product used for unknown indication
     Dosage: 0.5 MG
     Route: 065
  8. VITAMIN D [Concomitant]
     Active Substance: VITAMIN D NOS
     Indication: Product used for unknown indication
     Dosage: UNK
     Route: 065

REACTIONS (31)
  - Urinary retention [Unknown]
  - Somnolence [Unknown]
  - Decreased interest [Unknown]
  - Thyroid disorder [Unknown]
  - Depression [Recovering/Resolving]
  - Concomitant disease aggravated [Unknown]
  - Joint swelling [Recovering/Resolving]
  - Discouragement [Unknown]
  - Urinary tract disorder [Unknown]
  - COVID-19 [Unknown]
  - Discomfort [Unknown]
  - Malaise [Unknown]
  - Fall [Unknown]
  - Injury [Unknown]
  - Fear [Unknown]
  - Intervertebral disc disorder [Unknown]
  - Muscle spasms [Unknown]
  - Nasopharyngitis [Unknown]
  - Condition aggravated [Unknown]
  - Pain [Unknown]
  - Insomnia [Unknown]
  - Panic attack [Recovering/Resolving]
  - Dizziness [Unknown]
  - Bone pain [Unknown]
  - Gait disturbance [Unknown]
  - Pain in extremity [Unknown]
  - Osteoporosis [Unknown]
  - Memory impairment [Unknown]
  - Decreased appetite [Unknown]
  - Weight decreased [Unknown]
  - Tearfulness [Unknown]

NARRATIVE: CASE EVENT DATE: 20200301
